FAERS Safety Report 17601696 (Version 3)
Quarter: 2020Q2

REPORT INFORMATION
  Report Type: Report from Study
  Country: US (occurrence: US)
  Receive Date: 20200330
  Receipt Date: 20200624
  Transmission Date: 20200713
  Serious: Yes (Hospitalization, Other)
  Sender: FDA-Public Use
  Company Number: US-ACTELION-A-NJ2020-203563

PATIENT
  Sex: Male
  Weight: 113.38 kg

DRUGS (3)
  1. WARFARIN [Concomitant]
     Active Substance: WARFARIN
  2. SILDENAFIL CITRATE. [Concomitant]
     Active Substance: SILDENAFIL CITRATE
  3. OPSUMIT [Suspect]
     Active Substance: MACITENTAN
     Indication: PULMONARY ARTERIAL HYPERTENSION
     Dosage: 10 MG, QD
     Route: 048

REACTIONS (12)
  - Ventricular tachycardia [Unknown]
  - Dizziness [Unknown]
  - Implantable defibrillator insertion [Unknown]
  - Heart rate irregular [Unknown]
  - Ventricular assist device insertion [Unknown]
  - Cerebral haemorrhage [Unknown]
  - Gastrointestinal haemorrhage [Unknown]
  - Gastrointestinal surgery [Unknown]
  - Renal failure [Unknown]
  - Loss of consciousness [Recovered/Resolved]
  - Dialysis [Unknown]
  - Head injury [Unknown]
